FAERS Safety Report 8957723 (Version 1)
Quarter: 2012Q4

REPORT INFORMATION
  Report Type: 
  Country: GB (occurrence: GB)
  Receive Date: 20121210
  Receipt Date: 20121210
  Transmission Date: 20130627
  Serious: Yes (Other)
  Sender: FDA-Public Use
  Company Number: GB-PFIZER INC-2006098684

PATIENT
  Age: 71 Year
  Sex: Male

DRUGS (9)
  1. IBUPROFEN [Suspect]
     Indication: BACK PAIN
     Dosage: 400 mg, 3x/day
     Route: 048
     Dates: end: 20060310
  2. AMITRIPTYLINE HCL [Concomitant]
     Dosage: 10 MG DAILY
     Route: 065
  3. ACETYLSALICYLIC ACID [Concomitant]
     Dosage: 75 MG DAILY
     Route: 065
  4. ATORVASTATIN CALCIUM [Concomitant]
     Dosage: 40 MG DAILY
     Route: 048
  5. DILTIAZEM HCL [Concomitant]
     Dosage: 120 MG DAILY
     Route: 065
  6. FUROSEMIDE [Concomitant]
     Dosage: 40 MG DAILY
     Route: 065
  7. NITROGLYCERIN [Concomitant]
     Dosage: UNSPECIFIED
     Route: 065
  8. ISOSORBIDE MONONITRATE [Concomitant]
     Dosage: 60 MG DAILY
     Route: 065
  9. PERINDOPRIL [Concomitant]
     Dosage: 8 MG DAILY
     Route: 065

REACTIONS (1)
  - Angina pectoris [Unknown]
